FAERS Safety Report 6466493-3 (Version None)
Quarter: 2009Q4

REPORT INFORMATION
  Report Type: 
  Country: None (occurrence: None)
  Receive Date: 20091202
  Receipt Date: 20091123
  Transmission Date: 20100525
  Serious: Yes (Hospitalization)
  Sender: FDA-Public Use
  Company Number: US-ASTRAZENECA-2009SE28506

PATIENT
  Age: 47 Year
  Sex: Female
  Weight: 83.1 kg

DRUGS (21)
  1. SEROQUEL [Suspect]
     Route: 048
  2. IMC-1121B (ANTI-VEGFR2 MAB) [Suspect]
     Indication: METASTATIC MALIGNANT MELANOMA
     Route: 042
     Dates: start: 20080801, end: 20080924
  3. IMC-1121B (ANTI-VEGFR2 MAB) [Suspect]
     Route: 042
  4. METHADONE HCL [Suspect]
     Indication: PAIN
     Route: 048
  5. METHADONE HCL [Suspect]
     Dosage: 20 MG, TWO IN 12 HOURS
     Route: 048
  6. CLONAZEPAM [Suspect]
     Indication: ANXIETY
     Route: 048
     Dates: start: 20081022
  7. PROVIGIL [Suspect]
     Indication: FATIGUE
     Dosage: 1/2 TABLET DAILY
     Route: 048
     Dates: start: 20030101
  8. FLUOXETINE [Concomitant]
     Indication: MOOD ALTERED
     Route: 048
     Dates: start: 19990101
  9. FLUOXETINE [Concomitant]
     Route: 048
     Dates: start: 19990101
  10. GLUCOVANCE [Concomitant]
     Indication: DIABETES MELLITUS
     Dosage: 2.5/500 MCG, THREE TIMES A DAY
     Route: 048
     Dates: start: 20010101
  11. PREVACID [Concomitant]
     Indication: GASTRIC ULCER
     Route: 048
  12. SENAKOT S [Concomitant]
     Route: 048
  13. TOPROL-XL [Concomitant]
     Indication: HYPERTENSION
     Route: 048
     Dates: start: 20010101
  14. HYDROCODONE [Concomitant]
     Indication: PAIN
  15. HYDROMORPHONE HCL [Concomitant]
     Indication: PAIN
     Dosage: 2 MG, Q2HR PRN
     Route: 048
  16. LISINOPRIL [Concomitant]
     Indication: HYPERTENSION
     Route: 048
  17. NEXIUM [Concomitant]
     Indication: GASTROOESOPHAGEAL REFLUX DISEASE
  18. METOCLOPRAMIDE HCL [Concomitant]
     Indication: NAUSEA
     Dosage: 10, 30 MINS BEFORE MEAL AND AT NIGHT
     Route: 048
  19. DOCUSATE SODIUM [Concomitant]
     Indication: CONSTIPATION
     Dosage: 2 AT NIGHT
     Route: 048
     Dates: start: 20030101
  20. ANTIEMETIC [Concomitant]
     Indication: NAUSEA
  21. ANTIEMETIC [Concomitant]
     Indication: VOMITING

REACTIONS (16)
  - BACK PAIN [None]
  - BLOOD ALKALINE PHOSPHATASE INCREASED [None]
  - BLOOD PRESSURE INCREASED [None]
  - CONFUSIONAL STATE [None]
  - DECREASED APPETITE [None]
  - DYSARTHRIA [None]
  - DYSGEUSIA [None]
  - FATIGUE [None]
  - INSOMNIA [None]
  - LETHARGY [None]
  - MOOD ALTERED [None]
  - NAUSEA [None]
  - NEUTROPHIL COUNT INCREASED [None]
  - PSYCHOTIC DISORDER [None]
  - SEDATION [None]
  - WEIGHT DECREASED [None]
